FAERS Safety Report 5262809-4 (Version None)
Quarter: 2007Q1

REPORT INFORMATION
  Report Type: 
  Country: None (occurrence: None)
  Receive Date: 20070312
  Receipt Date: 20070308
  Transmission Date: 20070707
  Serious: Yes (Life-Threatening)
  Sender: FDA-Public Use
  Company Number: FR-GLAXOSMITHKLINE-B0461176A

PATIENT
  Age: 40 Year
  Sex: Female

DRUGS (3)
  1. AUGMENTIN [Suspect]
     Indication: UPPER RESPIRATORY TRACT INFECTION
     Dosage: 2G SINGLE DOSE
     Route: 048
  2. LYSOPAINE [Concomitant]
     Indication: UPPER RESPIRATORY TRACT INFECTION
     Route: 048
  3. IBUPROFEN [Concomitant]
     Indication: UPPER RESPIRATORY TRACT INFECTION
     Route: 048

REACTIONS (9)
  - ANAPHYLACTIC SHOCK [None]
  - FEELING HOT [None]
  - HYPOTENSION [None]
  - LIP OEDEMA [None]
  - MALAISE [None]
  - PALMAR ERYTHEMA [None]
  - PRURITUS [None]
  - SENSE OF OPPRESSION [None]
  - VOMITING [None]
